FAERS Safety Report 13423943 (Version 2)
Quarter: 2017Q2

REPORT INFORMATION
  Report Type: Spontaneous
  Country: AU (occurrence: AU)
  Receive Date: 20170410
  Receipt Date: 20170413
  Transmission Date: 20170830
  Serious: Yes (Hospitalization, Other)
  Sender: FDA-Public Use
  Company Number: AU-PFIZER INC-2017154645

PATIENT
  Sex: Male

DRUGS (3)
  1. PRISTIQ EXTENDED-RELEASE [Suspect]
     Active Substance: DESVENLAFAXINE SUCCINATE
     Dosage: UNK
  2. PROZAC [Suspect]
     Active Substance: FLUOXETINE HYDROCHLORIDE
     Dosage: UNK
  3. EFFEXOR XR [Suspect]
     Active Substance: VENLAFAXINE HYDROCHLORIDE
     Indication: ANXIETY
     Dosage: 37.5 MG, UNK
     Dates: end: 20140204

REACTIONS (30)
  - Withdrawal syndrome [Unknown]
  - Anxiety [Unknown]
  - Transaminases increased [Unknown]
  - Depression [Unknown]
  - Disturbance in attention [Unknown]
  - Fatigue [Unknown]
  - Lethargy [Unknown]
  - Agitation [Unknown]
  - Hyperhidrosis [Unknown]
  - Feeling of body temperature change [Unknown]
  - Panic attack [Unknown]
  - Suicidal ideation [Unknown]
  - Insomnia [Unknown]
  - Thinking abnormal [Unknown]
  - Dyspnoea [Unknown]
  - Depression [Unknown]
  - Condition aggravated [Unknown]
  - Malaise [Unknown]
  - Affect lability [Unknown]
  - Mental impairment [Unknown]
  - Serotonin syndrome [Unknown]
  - Abnormal dreams [Unknown]
  - Weight increased [Unknown]
  - Tobacco user [Unknown]
  - Palpitations [Unknown]
  - Nightmare [Unknown]
  - Mental disorder [Unknown]
  - Anger [Unknown]
  - Sleep disorder [Unknown]
  - Confusional state [Unknown]
